FAERS Safety Report 19495754 (Version 2)
Quarter: 2021Q3

REPORT INFORMATION
  Report Type: Spontaneous
  Country: JP (occurrence: JP)
  Receive Date: 20210706
  Receipt Date: 20210726
  Transmission Date: 20211014
  Serious: Yes (Hospitalization, Other)
  Sender: FDA-Public Use
  Company Number: NVSJ2021JP010009

PATIENT
  Age: 79 Year
  Sex: Male

DRUGS (5)
  1. CARVEDILOL. [Concomitant]
     Active Substance: CARVEDILOL
     Indication: PRODUCT USED FOR UNKNOWN INDICATION
     Dosage: 0.625 MG
     Route: 065
  2. BAYASPIRIN [Concomitant]
     Active Substance: ASPIRIN
     Indication: PRODUCT USED FOR UNKNOWN INDICATION
     Dosage: 100 MG
     Route: 065
  3. TAKECAB [Concomitant]
     Active Substance: VONOPRAZAN FUMARATE
     Indication: PRODUCT USED FOR UNKNOWN INDICATION
     Dosage: 10 MG
     Route: 065
  4. VALSARTAN TAB [Suspect]
     Active Substance: VALSARTAN
     Indication: HYPERTENSION
     Dosage: 40 MG
     Route: 048
  5. FUROSEMIDE. [Concomitant]
     Active Substance: FUROSEMIDE
     Indication: PRODUCT USED FOR UNKNOWN INDICATION
     Dosage: 20 MG
     Route: 065

REACTIONS (17)
  - Cardiac failure chronic [Unknown]
  - Low cardiac output syndrome [Unknown]
  - Ejection fraction decreased [Unknown]
  - Malaise [Unknown]
  - Cutaneous symptom [Unknown]
  - Dizziness postural [Unknown]
  - Glomerular filtration rate decreased [Unknown]
  - Metabolic acidosis [Unknown]
  - Heart alternation [Unknown]
  - Pituitary tumour benign [Unknown]
  - Congestive cardiomyopathy [Unknown]
  - Oedema peripheral [Unknown]
  - Orthopnoea [Unknown]
  - Ventricular tachycardia [Unknown]
  - Cerebellar infarction [Unknown]
  - Peripheral coldness [Unknown]
  - Blood lactic acid increased [Unknown]
